FAERS Safety Report 9117269 (Version 2)
Quarter: 2013Q3

REPORT INFORMATION
  Report Type: Spontaneous
  Country: DE (occurrence: DE)
  Receive Date: 20130225
  Receipt Date: 20130807
  Transmission Date: 20140515
  Serious: Yes (Other)
  Sender: FDA-Public Use
  Company Number: DE-JNJFOC-20130212857

PATIENT
  Age: 67 Year
  Sex: Male
  Weight: 89 kg

DRUGS (5)
  1. XARELTO [Suspect]
     Indication: PULMONARY EMBOLISM
     Route: 048
     Dates: start: 20120402, end: 20130204
  2. XARELTO [Suspect]
     Indication: PULMONARY EMBOLISM
     Route: 048
     Dates: start: 201304
  3. CEFACLOR [Suspect]
     Indication: BRONCHOPNEUMONIA
     Route: 065
     Dates: start: 201212
  4. PRAVASIN [Concomitant]
     Indication: HYPERCHOLESTEROLAEMIA
     Route: 065
  5. MARCUMAR [Concomitant]
     Route: 065
     Dates: start: 20130205, end: 20130404

REACTIONS (1)
  - Liver function test abnormal [Not Recovered/Not Resolved]
